FAERS Safety Report 16798458 (Version 1)
Quarter: 2019Q3

REPORT INFORMATION
  Report Type: Spontaneous
  Country: US (occurrence: US)
  Receive Date: 20190912
  Receipt Date: 20190912
  Transmission Date: 20191005
  Serious: No
  Sender: FDA-Public Use
  Company Number: US-ALLERGAN-1920721US

PATIENT
  Age: 83 Year
  Sex: Female

DRUGS (2)
  1. ACUVAIL [Suspect]
     Active Substance: KETOROLAC TROMETHAMINE
     Dosage: 2 GTT, TID
     Route: 047
     Dates: start: 201810, end: 201810
  2. ACUVAIL [Suspect]
     Active Substance: KETOROLAC TROMETHAMINE
     Indication: EYE INFLAMMATION
     Dosage: 2 GTT, BID
     Route: 047
     Dates: start: 201810, end: 201810

REACTIONS (4)
  - Eye irritation [Recovered/Resolved]
  - Eye pruritus [Recovered/Resolved]
  - Ocular discomfort [Recovered/Resolved]
  - Pain [Recovered/Resolved]

NARRATIVE: CASE EVENT DATE: 201810
